FAERS Safety Report 13305689 (Version 1)
Quarter: 2017Q1

REPORT INFORMATION
  Report Type: Spontaneous
  Country: GB (occurrence: GB)
  Receive Date: 20170308
  Receipt Date: 20170308
  Transmission Date: 20170428
  Serious: Yes (Other)
  Sender: FDA-Public Use
  Company Number: GB-TEVA-744896ACC

PATIENT
  Age: 63 Year
  Sex: Female
  Weight: 70 kg

DRUGS (6)
  1. ATORVASTATIN [Concomitant]
     Active Substance: ATORVASTATIN
  2. IVABRADINE [Concomitant]
     Active Substance: IVABRADINE
  3. CLOPIDOGREL [Suspect]
     Active Substance: CLOPIDOGREL BISULFATE
     Indication: ANTICOAGULANT THERAPY
     Dates: start: 20170119, end: 20170213
  4. ASPIRIN COATED [Concomitant]
     Active Substance: ASPIRIN
  5. ACCRETE D3 [Concomitant]
  6. PARACETAMOL [Concomitant]
     Active Substance: ACETAMINOPHEN

REACTIONS (5)
  - Swelling face [Unknown]
  - Hypersensitivity [Unknown]
  - Eye swelling [Unknown]
  - Lip swelling [Unknown]
  - Tenderness [Unknown]

NARRATIVE: CASE EVENT DATE: 20170210
